FAERS Safety Report 21592086 (Version 1)
Quarter: 2022Q4

REPORT INFORMATION
  Report Type: Spontaneous
  Country: US (occurrence: None)
  Receive Date: 20221112
  Receipt Date: 20221112
  Transmission Date: 20230113
  Serious: No
  Sender: FDA-Public Use
  Company Number: None

PATIENT
  Age: 33 Year
  Sex: Female
  Weight: 78.75 kg

DRUGS (5)
  1. FAMOTIDINE [Suspect]
     Active Substance: FAMOTIDINE
     Indication: Gastrooesophageal reflux disease
     Dosage: OTHER QUANTITY : 2 TABLET(S)?FREQUENCY : TWICE A DAY?
     Route: 048
     Dates: start: 20220419, end: 20221112
  2. ADDERALL [Concomitant]
     Active Substance: AMPHETAMINE ASPARTATE\AMPHETAMINE SULFATE\DEXTROAMPHETAMINE SACCHARATE\DEXTROAMPHETAMINE SULFATE
  3. VENLAFAXINE [Concomitant]
     Active Substance: VENLAFAXINE HYDROCHLORIDE
  4. LEVOCETIRIZINE [Concomitant]
     Active Substance: LEVOCETIRIZINE
  5. ASMANEX [Concomitant]
     Active Substance: MOMETASONE FUROATE

REACTIONS (6)
  - Product dispensing error [None]
  - Product colour issue [None]
  - Product physical issue [None]
  - Back pain [None]
  - Renal pain [None]
  - Incorrect dose administered [None]

NARRATIVE: CASE EVENT DATE: 20220419
